FAERS Safety Report 4811695-2 (Version None)
Quarter: 2005Q4

REPORT INFORMATION
  Report Type: 
  Country: None (occurrence: None)
  Receive Date: 20051025
  Receipt Date: 20051011
  Transmission Date: 20060501
  Serious: Yes (Death)
  Sender: FDA-Public Use
  Company Number: S05-ITA-03865-01

PATIENT
  Age: 74 Year
  Sex: Male

DRUGS (3)
  1. ELOPRAM (CITALOPRAM) (CITALOPRAM) [Suspect]
     Indication: DEPRESSION
     Dosage: 20 MG QD PO
     Route: 048
     Dates: start: 20040201, end: 20050910
  2. QUETIAPINE FUMARATE [Suspect]
     Indication: PSYCHOMOTOR HYPERACTIVITY
     Dosage: 125 MG QD PO
     Route: 048
     Dates: start: 20041006, end: 20050910
  3. HALOPERIDOL [Suspect]
     Indication: PSYCHOMOTOR HYPERACTIVITY
     Dosage: 1.5 MG QD PO
     Route: 048
     Dates: start: 20040201, end: 20050910

REACTIONS (1)
  - VENTRICULAR FIBRILLATION [None]
